FAERS Safety Report 4357675-5 (Version None)
Quarter: 2004Q2

REPORT INFORMATION
  Report Type: 
  Country: None (occurrence: None)
  Receive Date: 20040511
  Receipt Date: 20040506
  Transmission Date: 20050107
  Serious: Yes (Death)
  Sender: FDA-Public Use
  Company Number: TIF2004A00021

PATIENT
  Age: 83 Year
  Sex: Male

DRUGS (2)
  1. LEUPRORELIN DEPOT (LEUPROLIDE ACETATE) (INJECTION FOR INFUSION) [Suspect]
     Indication: PROSTATE CANCER
     Dosage: (3.75 MG, 1 IN 28 D)
  2. FLUTAMIDE [Suspect]
     Indication: PROSTATE CANCER
     Dosage: (1 IN 1 D)
     Dates: start: 20020903

REACTIONS (1)
  - BRONCHOPNEUMONIA [None]
